FAERS Safety Report 21527743 (Version 2)
Quarter: 2022Q4

REPORT INFORMATION
  Report Type: Spontaneous
  Country: US (occurrence: US)
  Receive Date: 20221031
  Receipt Date: 20221031
  Transmission Date: 20230112
  Serious: No
  Sender: FDA-Public Use
  Company Number: US-RECKITT BENCKISER HEALTHCARE INT LIMITED-RB-081722-2022

PATIENT
  Age: 65 Year
  Sex: Female
  Weight: 67.574 kg

DRUGS (1)
  1. MUCINEX [Suspect]
     Active Substance: GUAIFENESIN
     Indication: COVID-19
     Dosage: 1 DOSAGE FORM, BID
     Route: 048
     Dates: start: 202201

REACTIONS (6)
  - Lip pain [Recovered/Resolved]
  - Glossitis [Recovered/Resolved]
  - Product use in unapproved indication [Recovered/Resolved]
  - Cheilitis [Recovered/Resolved]
  - Lip swelling [Recovered/Resolved]
  - Mouth swelling [Recovered/Resolved]

NARRATIVE: CASE EVENT DATE: 20220101
